FAERS Safety Report 23838797 (Version 1)
Quarter: 2024Q2

REPORT INFORMATION
  Report Type: Spontaneous
  Country: US (occurrence: US)
  Receive Date: 20240509
  Receipt Date: 20240509
  Transmission Date: 20240715
  Serious: Yes (Hospitalization, Other)
  Sender: FDA-Public Use
  Company Number: US-VANTIVE-2024VAN016738

PATIENT

DRUGS (1)
  1. DIANEAL [Suspect]
     Active Substance: CALCIUM CHLORIDE\DEXTROSE\MAGNESIUM CHLORIDE\SODIUM CHLORIDE\SODIUM LACTATE
     Indication: Peritoneal dialysis
     Route: 033

REACTIONS (6)
  - Haemoperitoneum [Unknown]
  - Haemorrhage [Unknown]
  - Peritonitis [Unknown]
  - Abdominal pain upper [Unknown]
  - Nausea [Unknown]
  - Peritoneal dialysis complication [Unknown]
